FAERS Safety Report 4529435-3 (Version None)
Quarter: 2004Q4

REPORT INFORMATION
  Report Type: 
  Country: None (occurrence: None)
  Receive Date: 20041216
  Receipt Date: 20041019
  Transmission Date: 20050328
  Serious: Yes (Disabling, Other)
  Sender: FDA-Public Use
  Company Number: 2004S1003131

PATIENT
  Age: 70 Year
  Sex: Female

DRUGS (5)
  1. ACEBUTOLOL HCL [Suspect]
     Indication: TACHYCARDIA
     Dosage: 200MG, QD; ORAL
     Route: 048
     Dates: start: 20041015, end: 20041018
  2. NORTRIPTYLINE HCL [Concomitant]
  3. ALENDRONATE SODIUM [Concomitant]
  4. ZOLPIDEM [Concomitant]
  5. LANSOPRAZOLE [Concomitant]

REACTIONS (4)
  - ASTHENIA [None]
  - DRUG INEFFECTIVE [None]
  - DYSGEUSIA [None]
  - TACHYCARDIA [None]
